FAERS Safety Report 16084091 (Version 1)
Quarter: 2019Q1

REPORT INFORMATION
  Report Type: Spontaneous
  Country: US (occurrence: US)
  Receive Date: 20190318
  Receipt Date: 20190318
  Transmission Date: 20190418
  Serious: No
  Sender: FDA-Public Use
  Company Number: US-PFIZER INC-2019109293

PATIENT
  Age: 68 Year
  Sex: Female
  Weight: 124.74 kg

DRUGS (1)
  1. AROMASIN [Suspect]
     Active Substance: EXEMESTANE
     Indication: BREAST CANCER
     Dosage: 25 MG, 1X/DAY
     Route: 048
     Dates: start: 20190101, end: 20190228

REACTIONS (5)
  - Malaise [Recovering/Resolving]
  - Hot flush [Recovering/Resolving]
  - Insomnia [Unknown]
  - Night sweats [Recovering/Resolving]
  - Headache [Recovered/Resolved]

NARRATIVE: CASE EVENT DATE: 201902
